FAERS Safety Report 21167177 (Version 1)
Quarter: 2022Q3

REPORT INFORMATION
  Report Type: Spontaneous
  Country: US (occurrence: US)
  Receive Date: 20220803
  Receipt Date: 20220803
  Transmission Date: 20221026
  Serious: No
  Sender: FDA-Public Use
  Company Number: US-ORGANON-O2208USA000075

PATIENT
  Age: 31 Year
  Sex: Female
  Weight: 60.771 kg

DRUGS (1)
  1. NEXPLANON [Suspect]
     Active Substance: ETONOGESTREL
     Indication: Contraception
     Dosage: 1 ROD (LEFT ARM) FOR 3 YEARS
     Route: 059
     Dates: start: 20200407

REACTIONS (1)
  - Implant site pruritus [Not Recovered/Not Resolved]

NARRATIVE: CASE EVENT DATE: 20220621
